FAERS Safety Report 14014517 (Version 4)
Quarter: 2017Q4

REPORT INFORMATION
  Report Type: Spontaneous
  Country: PL (occurrence: PL)
  Receive Date: 20170927
  Receipt Date: 20171201
  Transmission Date: 20180321
  Serious: Yes (Other)
  Sender: FDA-Public Use
  Company Number: PL-AMGEN-POLSP2017143786

PATIENT
  Age: 67 Year
  Sex: Female

DRUGS (3)
  1. XGEVA [Suspect]
     Active Substance: DENOSUMAB
     Indication: BREAST CANCER
     Dosage: UNK
     Route: 065
     Dates: start: 2012, end: 2017
  2. FULVESTRANT. [Concomitant]
     Active Substance: FULVESTRANT
  3. ZOLEDRONIC ACID [Concomitant]
     Active Substance: ZOLEDRONIC ACID
     Dosage: UNK
     Dates: start: 2012

REACTIONS (7)
  - Osteonecrosis [Unknown]
  - Tooth extraction [Unknown]
  - Impaired healing [Unknown]
  - Wound dehiscence [Unknown]
  - Wound haemorrhage [Unknown]
  - Wound complication [Unknown]
  - Inflammation [Unknown]

NARRATIVE: CASE EVENT DATE: 2017
